FAERS Safety Report 7161661-X (Version None)
Quarter: 2010Q4

REPORT INFORMATION
  Report Type: 
  Country: None (occurrence: None)
  Receive Date: 20101215
  Receipt Date: 20101025
  Transmission Date: 20110411
  Serious: Yes (Other)
  Sender: FDA-Public Use
  Company Number: CO-SANOFI-AVENTIS-2010SA066169

PATIENT
  Age: 58 Year
  Sex: Female

DRUGS (10)
  1. ALLEGRA [Suspect]
     Indication: EUSTACHIAN TUBE DYSFUNCTION
     Route: 048
     Dates: start: 20100917, end: 20101005
  2. ALLEGRA [Suspect]
     Route: 048
     Dates: start: 20100917, end: 20101005
  3. FLUTICASONE PROPIONATE [Concomitant]
     Indication: EUSTACHIAN TUBE DYSFUNCTION
     Route: 045
     Dates: start: 20100917
  4. FLUTICASONE PROPIONATE [Concomitant]
     Indication: NASAL TURBINATE HYPERTROPHY
     Route: 045
     Dates: start: 20100917
  5. ACTONEL [Concomitant]
     Indication: OSTEOPENIA
     Route: 048
     Dates: start: 20060101
  6. LOVAZA [Concomitant]
     Route: 065
     Dates: start: 20060101
  7. OMEGA-6 FATTY ACIDS [Concomitant]
     Route: 065
     Dates: start: 20060101
  8. CALCIUM [Concomitant]
     Indication: OSTEOPENIA
     Route: 048
     Dates: start: 20060101
  9. CHONDROITIN SULFATE/GLUCOSAMINE HYDROCHLORIDE [Concomitant]
     Route: 048
     Dates: start: 20060101
  10. MULTI-VITAMINS [Concomitant]
     Route: 048
     Dates: start: 20020101

REACTIONS (15)
  - ANAL HAEMORRHAGE [None]
  - ANORECTAL DISCOMFORT [None]
  - BLOOD URINE PRESENT [None]
  - CYSTITIS [None]
  - DRUG HYPERSENSITIVITY [None]
  - HAEMATOCHEZIA [None]
  - MELAENA [None]
  - MOUTH HAEMORRHAGE [None]
  - OFF LABEL USE [None]
  - PETECHIAE [None]
  - TACHYCARDIA [None]
  - TONGUE HAEMORRHAGE [None]
  - VAGINAL HAEMORRHAGE [None]
  - VERTIGO [None]
  - VULVOVAGINAL DISCOMFORT [None]
